FAERS Safety Report 4709662-2 (Version None)
Quarter: 2005Q3

REPORT INFORMATION
  Report Type: 
  Country: None (occurrence: None)
  Receive Date: 20050707
  Receipt Date: 20050622
  Transmission Date: 20060218
  Serious: Yes (Hospitalization, Other)
  Sender: FDA-Public Use
  Company Number: USA0506100681

PATIENT
  Age: 81 Year
  Sex: Female
  Weight: 52.6173 kg

DRUGS (1)
  1. FORTEO [Suspect]
     Indication: OSTEOPOROSIS
     Dosage: 20 UG/1 DAY
     Dates: start: 20021201

REACTIONS (8)
  - ACCIDENT [None]
  - FEAR [None]
  - FOREARM FRACTURE [None]
  - LOSS OF CONSCIOUSNESS [None]
  - ORAL INTAKE REDUCED [None]
  - PHARMACEUTICAL PRODUCT COMPLAINT [None]
  - WEIGHT DECREASED [None]
  - WRIST FRACTURE [None]
